FAERS Safety Report 5840696-0 (Version None)
Quarter: 2008Q3

REPORT INFORMATION
  Report Type: 
  Country: None (occurrence: None)
  Receive Date: 20080811
  Receipt Date: 20080806
  Transmission Date: 20090109
  Serious: Yes (Life-Threatening)
  Sender: FDA-Public Use
  Company Number: PHHY2008IT17006

PATIENT
  Sex: Female

DRUGS (3)
  1. ZOMETA [Suspect]
     Indication: MULTIPLE MYELOMA
     Dosage: 4 MG /20 DAYS (X 3 CYCLES)
     Route: 042
     Dates: start: 20020601, end: 20080501
  2. BORTEZOMIB [Concomitant]
     Dosage: 1.3 MG/ M2, 4 DOSES
     Dates: start: 20080416, end: 20080508
  3. DEXAMETHASONE [Concomitant]
     Dosage: 8 MG, QD

REACTIONS (1)
  - OSTEONECROSIS [None]
